FAERS Safety Report 13697839 (Version 1)
Quarter: 2017Q2

REPORT INFORMATION
  Report Type: Spontaneous
  Country: US (occurrence: US)
  Receive Date: 20170627
  Receipt Date: 20170627
  Transmission Date: 20170830
  Serious: Yes (Hospitalization)
  Sender: FDA-Public Use
  Company Number: None

PATIENT
  Age: 64 Year
  Sex: Male

DRUGS (8)
  1. MORPHINE [Concomitant]
     Active Substance: MORPHINE
  2. GABAPENTIN. [Concomitant]
     Active Substance: GABAPENTIN
  3. FISH OIL [Concomitant]
     Active Substance: FISH OIL
  4. TRAZODONE [Concomitant]
     Active Substance: TRAZODONE HYDROCHLORIDE
  5. SODIUM BICAR [Concomitant]
  6. AMBIEN [Concomitant]
     Active Substance: ZOLPIDEM TARTRATE
  7. LONSURF [Suspect]
     Active Substance: TIPIRACIL HYDROCHLORIDE\TRIFLURIDINE
     Indication: RECTAL CANCER
     Route: 048
     Dates: start: 20170330
  8. COLACE [Concomitant]
     Active Substance: DOCUSATE SODIUM

REACTIONS (5)
  - Urinary tract infection [None]
  - Fluid retention [None]
  - Diarrhoea [None]
  - Decreased appetite [None]
  - Constipation [None]

NARRATIVE: CASE EVENT DATE: 201706
